FAERS Safety Report 7890166-3 (Version None)
Quarter: 2011Q4

REPORT INFORMATION
  Report Type: 
  Country: None (occurrence: None)
  Receive Date: 20111103
  Receipt Date: 20111028
  Transmission Date: 20120403
  Serious: Yes (Hospitalization)
  Sender: FDA-Public Use
  Company Number: US-ASTRAZENECA-2011SE64923

PATIENT
  Age: 47 Year
  Sex: Female
  Weight: 60.3 kg

DRUGS (3)
  1. SEROQUEL [Suspect]
     Indication: DEPRESSION
     Route: 048
  2. SEROQUEL [Suspect]
     Route: 048
     Dates: start: 20080101
  3. SEROQUEL [Suspect]
     Route: 048

REACTIONS (5)
  - MENTAL DISORDER [None]
  - DYSPHAGIA [None]
  - DRY MOUTH [None]
  - DRUG INEFFECTIVE [None]
  - INSOMNIA [None]
